FAERS Safety Report 22325772 (Version 1)
Quarter: 2023Q2

REPORT INFORMATION
  Report Type: Spontaneous
  Country: US (occurrence: US)
  Receive Date: 20230516
  Receipt Date: 20230516
  Transmission Date: 20230721
  Serious: No
  Sender: FDA-Public Use
  Company Number: US-ANIPHARMA-2023-US-005134

PATIENT
  Age: 58 Year
  Sex: Male

DRUGS (10)
  1. CORTICOTROPIN [Suspect]
     Active Substance: CORTICOTROPIN
     Indication: Nephrotic syndrome
     Dosage: INJECT 80 UNITS (1ML) SUBCUTANEOUSLY TWO TIMES A WEEK
     Route: 058
     Dates: start: 202211
  2. ALFUZOSIN [Concomitant]
     Active Substance: ALFUZOSIN
  3. PROGRAF [Concomitant]
     Active Substance: TACROLIMUS
  4. MYFORTIC [Concomitant]
     Active Substance: MYCOPHENOLATE SODIUM
  5. PRAVASTATIN [Concomitant]
     Active Substance: PRAVASTATIN
  6. BENICAR [Concomitant]
     Active Substance: OLMESARTAN MEDOXOMIL
  7. MAGNESIUM [Concomitant]
     Active Substance: MAGNESIUM
  8. LYRICA [Concomitant]
     Active Substance: PREGABALIN
  9. COREG [Concomitant]
     Active Substance: CARVEDILOL
  10. BUMEX [Concomitant]
     Active Substance: BUMETANIDE

REACTIONS (3)
  - Tremor [Not Recovered/Not Resolved]
  - Fluid retention [Recovered/Resolved]
  - Product dose omission issue [Not Recovered/Not Resolved]

NARRATIVE: CASE EVENT DATE: 20221101
